FAERS Safety Report 4280440-4 (Version None)
Quarter: 2004Q1

REPORT INFORMATION
  Report Type: 
  Country: None (occurrence: None)
  Receive Date: 20040127
  Receipt Date: 20040115
  Transmission Date: 20041129
  Serious: Yes (Hospitalization)
  Sender: FDA-Public Use
  Company Number: A-CH2003-03879

PATIENT
  Age: 47 Year
  Sex: Female
  Weight: 79 kg

DRUGS (4)
  1. TRACLEER [Suspect]
     Indication: PULMONARY HYPERTENSION
     Dosage: 62.5 MG, BID, ORAL
     Route: 048
     Dates: start: 20031110, end: 20031126
  2. MARCUMAR [Concomitant]
  3. CORTISONE (CORTISONE) [Concomitant]
  4. OXYGEN (OXYGEN) [Concomitant]

REACTIONS (6)
  - C-REACTIVE PROTEIN INCREASED [None]
  - CONCOMITANT DISEASE PROGRESSION [None]
  - DYSPNOEA EXACERBATED [None]
  - PNEUMONIA [None]
  - PO2 DECREASED [None]
  - WHITE BLOOD CELL COUNT INCREASED [None]
